FAERS Safety Report 9897620 (Version 1)
Quarter: 2014Q1

REPORT INFORMATION
  Report Type: Spontaneous
  Country: US (occurrence: US)
  Receive Date: 20140214
  Receipt Date: 20140214
  Transmission Date: 20141002
  Serious: No
  Sender: FDA-Public Use
  Company Number: US-DRREDDYS-USA/USA/13/0028652

PATIENT
  Sex: Male

DRUGS (8)
  1. SIMVASTATIN 40 MG [Suspect]
     Indication: BLOOD CHOLESTEROL INCREASED
     Route: 065
  2. OMEPRAZOLE MAGNESIUM DELAYED RELEASE OTC [Suspect]
     Indication: GASTROOESOPHAGEAL REFLUX DISEASE
     Dosage: 20.6 MG DAILY
     Route: 065
  3. OMEPRAZOLE MAGNESIUM DELAYED RELEASE OTC [Suspect]
     Route: 065
     Dates: start: 20130318
  4. AUGMENTIN [Suspect]
     Indication: SINUSITIS
     Route: 065
  5. FEXOFENADINE HCL OTC [Suspect]
     Indication: HYPERSENSITIVITY
     Dosage: 180 MG DAILY
     Route: 065
  6. LISINOPRIL [Suspect]
     Indication: HYPERTENSION
     Route: 065
  7. LISINOPRIL [Suspect]
     Route: 065
  8. FLONASE [Suspect]
     Indication: HYPERSENSITIVITY
     Route: 045

REACTIONS (4)
  - Pruritus [Not Recovered/Not Resolved]
  - Pain in extremity [Not Recovered/Not Resolved]
  - Oedema peripheral [Not Recovered/Not Resolved]
  - Urticaria [Not Recovered/Not Resolved]
